FAERS Safety Report 14995480 (Version 1)
Quarter: 2018Q2

REPORT INFORMATION
  Report Type: Spontaneous
  Country: US (occurrence: US)
  Receive Date: 20180611
  Receipt Date: 20180611
  Transmission Date: 20180711
  Serious: No
  Sender: FDA-Public Use
  Company Number: US-SA-2018SA153357

PATIENT
  Sex: Male

DRUGS (1)
  1. PRALUENT [Suspect]
     Active Substance: ALIROCUMAB
     Indication: HYPERLIPIDAEMIA
     Dosage: 1 DF, QOW
     Route: 058
     Dates: start: 20180419

REACTIONS (4)
  - Oropharyngeal pain [Unknown]
  - Urine abnormality [Unknown]
  - Myalgia [Unknown]
  - Influenza like illness [Unknown]
